FAERS Safety Report 9028330 (Version 1)
Quarter: 2013Q1

REPORT INFORMATION
  Report Type: Spontaneous
  Country: US (occurrence: US)
  Receive Date: 20130124
  Receipt Date: 20130124
  Transmission Date: 20140127
  Serious: No
  Sender: FDA-Public Use
  Company Number: US-BAUSCH-BL-2012-000298

PATIENT
  Age: 66 Year
  Sex: Female

DRUGS (3)
  1. ALAWAY [Suspect]
     Indication: EYE ALLERGY
     Dosage: ONE DROP IN EACH EYE TWICE DAILY
     Route: 047
     Dates: start: 201206, end: 201207
  2. ALAWAY [Suspect]
     Indication: EYE PRURITUS
  3. FEXOFENADINE HYDROCHLORIDE [Concomitant]
     Indication: HYPERSENSITIVITY

REACTIONS (2)
  - Instillation site pain [Recovered/Resolved]
  - Drug ineffective [Not Recovered/Not Resolved]
